FAERS Safety Report 4458109-2 (Version None)
Quarter: 2004Q3

REPORT INFORMATION
  Report Type: 
  Country: None (occurrence: None)
  Receive Date: 20040924
  Receipt Date: 20040219
  Transmission Date: 20050211
  Serious: Yes (Disabling, Other)
  Sender: FDA-Public Use
  Company Number: US-MERCK-0402USA01501

PATIENT
  Age: 42 Year
  Sex: Male
  Weight: 77 kg

DRUGS (26)
  1. VICODIN [Concomitant]
     Indication: ARTHRALGIA
     Route: 048
  2. VICODIN [Concomitant]
     Route: 048
  3. ALBUTEROL [Concomitant]
     Indication: ASTHMA
     Route: 065
  4. AMINO ACIDS (UNSPECIFIED) [Concomitant]
     Route: 065
  5. ASCORBIC ACID [Concomitant]
     Route: 065
  6. ASPIRIN [Concomitant]
     Indication: PROPHYLAXIS
     Route: 065
  7. Z-PAK [Concomitant]
     Route: 065
     Dates: start: 20040220
  8. BUPROPION HYDROCHLORIDE [Concomitant]
     Route: 065
  9. BUSPIRONE HYDROCHLORIDE [Concomitant]
     Indication: INSOMNIA
     Route: 048
  10. CLONAZEPAM [Concomitant]
     Indication: INSOMNIA
     Route: 065
  11. GINKGO BILOBA EXTRACT [Concomitant]
     Route: 065
  12. GINSENG [Concomitant]
     Route: 065
  13. LEVOCARNITINE TARTRATE [Concomitant]
     Indication: CHRONIC FATIGUE SYNDROME
     Route: 065
  14. LEVOCARNITINE TARTRATE [Concomitant]
     Indication: GULF WAR SYNDROME
     Route: 065
  15. NAPROXEN [Concomitant]
     Route: 065
  16. NAPROXEN [Concomitant]
     Route: 048
  17. POTASSIUM DICHROMATE [Concomitant]
     Route: 065
  18. RANITIDINE [Concomitant]
     Route: 048
  19. ZOCOR [Suspect]
     Indication: HYPERCHOLESTEROLAEMIA
     Route: 048
     Dates: start: 20010801
  20. ZOCOR [Suspect]
     Route: 048
     Dates: start: 20030601
  21. ZOCOR [Suspect]
     Route: 048
     Dates: start: 20031201, end: 20031201
  22. ZOCOR [Suspect]
     Indication: HYPERLIPIDAEMIA
     Route: 048
     Dates: start: 20010801
  23. ZOCOR [Suspect]
     Route: 048
     Dates: start: 20030601
  24. ZOCOR [Suspect]
     Route: 048
     Dates: start: 20031201, end: 20031201
  25. VITAMIN E [Concomitant]
     Route: 065
  26. VITAMINS (UNSPECIFIED) [Concomitant]
     Route: 065

REACTIONS (31)
  - ABDOMINAL PAIN UPPER [None]
  - ANOREXIA [None]
  - ANXIETY [None]
  - ARTHRALGIA [None]
  - ASTHENIA [None]
  - BLOOD TRIGLYCERIDES INCREASED [None]
  - CHEST PAIN [None]
  - DRUG HYPERSENSITIVITY [None]
  - DYSPNOEA [None]
  - EAR PAIN [None]
  - ERECTILE DYSFUNCTION [None]
  - FALL [None]
  - FATIGUE [None]
  - FLIGHT OF IDEAS [None]
  - HEADACHE [None]
  - INAPPROPRIATE AFFECT [None]
  - INSOMNIA [None]
  - MEDICATION ERROR [None]
  - MUSCLE CRAMP [None]
  - MYALGIA [None]
  - PAIN [None]
  - PRESSURE OF SPEECH [None]
  - RASH VESICULAR [None]
  - RENAL DISORDER [None]
  - RHABDOMYOLYSIS [None]
  - ROTATOR CUFF SYNDROME [None]
  - SENSATION OF FOREIGN BODY [None]
  - SENSORY DISTURBANCE [None]
  - SINUSITIS [None]
  - SPEECH DISORDER [None]
  - WEIGHT INCREASED [None]
